FAERS Safety Report 4801381-7 (Version None)
Quarter: 2005Q4

REPORT INFORMATION
  Report Type: 
  Country: None (occurrence: None)
  Receive Date: 20051017
  Receipt Date: 20051010
  Transmission Date: 20060501
  Serious: Yes (Hospitalization)
  Sender: FDA-Public Use
  Company Number: DE-ABBOTT-05P-062-0313378-00

PATIENT
  Sex: Male
  Weight: 75 kg

DRUGS (4)
  1. HUMIRA [Suspect]
     Indication: RHEUMATOID ARTHRITIS
     Route: 058
     Dates: start: 20031201, end: 20050701
  2. CALCIUM GLUCONATE [Concomitant]
     Indication: DRUG USE FOR UNKNOWN INDICATION
     Route: 048
  3. PARACETAMOL [Concomitant]
     Indication: DRUG USE FOR UNKNOWN INDICATION
     Route: 048
  4. CORTICOSTEROIDS [Concomitant]
     Indication: DRUG USE FOR UNKNOWN INDICATION
     Dosage: 5MG AND 2.5MG IN DAILY CHANGE
     Route: 048
     Dates: end: 20050901

REACTIONS (5)
  - CRYPTOGENIC ORGANIZING PNEUMONIA [None]
  - MUSCULOSKELETAL STIFFNESS [None]
  - OBLITERATIVE BRONCHIOLITIS [None]
  - PATHOGEN RESISTANCE [None]
  - PNEUMONIA [None]
